FAERS Safety Report 5470515-6 (Version None)
Quarter: 2007Q3

REPORT INFORMATION
  Report Type: 
  Country: None (occurrence: None)
  Receive Date: 20070927
  Receipt Date: 20070927
  Transmission Date: 20080115
  Serious: Yes (Other)
  Sender: FDA-Public Use
  Company Number: None

PATIENT
  Sex: Male
  Weight: 95.2554 kg

DRUGS (1)
  1. PROPOFOL [Suspect]

REACTIONS (11)
  - BACTERIAL SEPSIS [None]
  - BODY TEMPERATURE INCREASED [None]
  - CHEST DISCOMFORT [None]
  - CHILLS [None]
  - COUGH [None]
  - DYSPHONIA [None]
  - INFLUENZA [None]
  - MALAISE [None]
  - PAIN [None]
  - SNEEZING [None]
  - VIRAL INFECTION [None]
